FAERS Safety Report 5820248-9 (Version None)
Quarter: 2008Q3

REPORT INFORMATION
  Report Type: 
  Country: None (occurrence: None)
  Receive Date: 20080724
  Receipt Date: 20080711
  Transmission Date: 20090109
  Serious: Yes (Other)
  Sender: FDA-Public Use
  Company Number: CA-JNJFOC-20060500208

PATIENT
  Age: 46 Year
  Sex: Male

DRUGS (6)
  1. REMICADE [Suspect]
     Dosage: TOTAL OF 9 INFUSIONS
     Route: 042
  2. REMICADE [Suspect]
     Indication: CROHN'S DISEASE
     Dosage: AT WEEK 0, 2, AND 6
     Route: 042
  3. BUDESONIDE [Concomitant]
  4. CORTICOSTEROIDS [Concomitant]
     Indication: CROHN'S DISEASE
  5. AZATHIOPRINE [Concomitant]
     Indication: CROHN'S DISEASE
  6. METHOTREXATE [Concomitant]
     Indication: CROHN'S DISEASE

REACTIONS (1)
  - DEMYELINATING POLYNEUROPATHY [None]
